FAERS Safety Report 5511900-3 (Version None)
Quarter: 2007Q4

REPORT INFORMATION
  Report Type: 
  Country: None (occurrence: None)
  Receive Date: 20071109
  Receipt Date: 20071030
  Transmission Date: 20080405
  Serious: Yes (Disabling, Other)
  Sender: FDA-Public Use
  Company Number: US-PFIZER INC-2007091474

PATIENT
  Sex: Female

DRUGS (2)
  1. ALPRAZOLAM [Suspect]
  2. ALPRAZOLAM EXTENDED-RELEASE [Suspect]

REACTIONS (11)
  - ABASIA [None]
  - AMNESIA [None]
  - CARDIAC ARREST [None]
  - CARDIAC DISORDER [None]
  - DEPRESSION [None]
  - DRUG EXPOSURE DURING PREGNANCY [None]
  - MALAISE [None]
  - MUSCLE DISORDER [None]
  - NERVOUS SYSTEM DISORDER [None]
  - PHYSICAL DISABILITY [None]
  - REPRODUCTIVE TRACT DISORDER [None]
